FAERS Safety Report 24892878 (Version 1)
Quarter: 2025Q1

REPORT INFORMATION
  Report Type: Spontaneous
  Country: US (occurrence: US)
  Receive Date: 20250128
  Receipt Date: 20250128
  Transmission Date: 20250408
  Serious: No
  Sender: DEXCEL LTD.
  Company Number: US-PERRIGO-24US001343

PATIENT
  Age: 46 Year
  Sex: Female
  Weight: 74.83 kg

DRUGS (3)
  1. OMEPRAZOLE [Suspect]
     Active Substance: OMEPRAZOLE
     Indication: Dyspepsia
     Dosage: 20 MG, QAM
     Route: 048
     Dates: start: 20240204, end: 20240205
  2. ASPIRIN [Concomitant]
     Active Substance: ASPIRIN
     Indication: Headache
     Route: 065
     Dates: start: 20240201
  3. INVEGA [Concomitant]
     Active Substance: PALIPERIDONE
     Indication: Bipolar disorder
     Route: 065

REACTIONS (4)
  - Stomatitis [Not Recovered/Not Resolved]
  - Swollen tongue [Not Recovered/Not Resolved]
  - Abdominal discomfort [Not Recovered/Not Resolved]
  - Hypersensitivity [Not Recovered/Not Resolved]

NARRATIVE: CASE EVENT DATE: 20240205
